FAERS Safety Report 19939619 (Version 7)
Quarter: 2022Q3

REPORT INFORMATION
  Report Type: Spontaneous
  Country: US (occurrence: US)
  Receive Date: 20211011
  Receipt Date: 20220726
  Transmission Date: 20221027
  Serious: Yes (Other)
  Sender: FDA-Public Use
  Company Number: US-PFIZER INC-202101284506

PATIENT
  Age: 65 Year
  Sex: Female
  Weight: 144.21 kg

DRUGS (1)
  1. XELJANZ XR [Suspect]
     Active Substance: TOFACITINIB CITRATE
     Indication: Rheumatoid arthritis
     Dosage: 11 MG, 1X/DAY

REACTIONS (9)
  - Retinal neoplasm [Unknown]
  - Blindness unilateral [Unknown]
  - Cataract [Unknown]
  - Drug dependence [Unknown]
  - Product dose omission issue [Unknown]
  - Joint swelling [Unknown]
  - Pain [Unknown]
  - Fall [Unknown]
  - Memory impairment [Unknown]
